FAERS Safety Report 7653256-6 (Version None)
Quarter: 2011Q3

REPORT INFORMATION
  Report Type: 
  Country: None (occurrence: None)
  Receive Date: 20110803
  Receipt Date: 20080723
  Transmission Date: 20111222
  Serious: Yes (Life-Threatening, Disabling, Other)
  Sender: FDA-Public Use
  Company Number: US-BAYER-200821105NA

PATIENT
  Sex: Male
  Weight: 116 kg

DRUGS (40)
  1. NIFEDIPINE [Concomitant]
     Indication: HYPERTENSION
     Dosage: 60 MG X 2 DAILY
  2. STARLIX [Concomitant]
     Indication: DIABETES MELLITUS
     Dosage: UNK
     Dates: start: 20071001
  3. XALATAN [Concomitant]
     Indication: INTRAOCULAR PRESSURE INCREASED
  4. LISINOPRIL [Concomitant]
     Dosage: 40 MG, 2 TABLETS
     Route: 048
  5. NEPHROCAPS [Concomitant]
     Dosage: UNK
     Dates: start: 20020601
  6. MAGNEVIST [Suspect]
     Dosage: 20CC
     Route: 042
     Dates: start: 20011102, end: 20011102
  7. MAGNEVIST [Suspect]
     Dosage: 20CC
     Route: 042
     Dates: start: 20020121, end: 20020121
  8. MAGNEVIST [Suspect]
     Dosage: 20CC
     Route: 042
     Dates: start: 20020620, end: 20020620
  9. OPTIMARK [Suspect]
     Indication: NUCLEAR MAGNETIC RESONANCE IMAGING
     Dates: start: 20060126, end: 20060126
  10. OMNISCAN [Suspect]
     Indication: NUCLEAR MAGNETIC RESONANCE IMAGING
  11. DILTIAZEM [Concomitant]
     Dosage: 30 MG, 1 TABLET
     Route: 048
  12. MAGNEVIST [Suspect]
     Dosage: 20CC
     Dates: start: 20030728, end: 20030728
  13. OPTIMARK [Suspect]
     Dosage: 20CC
     Route: 042
     Dates: start: 20051202, end: 20051202
  14. METOPROLOL TARTRATE [Concomitant]
     Indication: HYPERTENSION
     Dosage: 100 MG X 2 DAILY
  15. MYFORTIC [Concomitant]
     Indication: PROPHYLAXIS AGAINST TRANSPLANT REJECTION
     Dosage: 180 MG, 4 TABS 9 AM AND 9 PM
  16. FOSRENOL [Concomitant]
     Dosage: 500 MG, 2 TABLETS
     Route: 048
  17. MAGNEVIST [Suspect]
     Dosage: 20CC
     Route: 042
     Dates: start: 20051104, end: 20051104
  18. SLOW MAG [Concomitant]
     Indication: MINERAL SUPPLEMENTATION
     Dosage: 4 TABS DAILY
  19. SEVELAMER [Concomitant]
     Dosage: 800 MG +#8211; 3200 MG
     Route: 048
  20. IRON [CITRIC ACID,FERROUS SULFATE] [Concomitant]
     Indication: ANAEMIA
     Dosage: UNK
     Dates: start: 20020601, end: 20071001
  21. OPTIMARK [Suspect]
     Indication: NUCLEAR MAGNETIC RESONANCE IMAGING BRAIN
     Dates: start: 20060918, end: 20060918
  22. OPTIMARK [Suspect]
     Dosage: 20CC
     Dates: start: 20051227, end: 20051227
  23. MINOXIDIL [Concomitant]
     Dosage: 2.5 MG, 1 TABLET
     Route: 048
  24. OPTIMARK [Suspect]
     Dosage: 20 CC
     Dates: start: 20050309, end: 20050309
  25. MULTIHANCE [Suspect]
     Indication: NUCLEAR MAGNETIC RESONANCE IMAGING
  26. CLONIDINE [Concomitant]
     Indication: HYPERTENSION
     Dosage: 0.1 MG X 2 DAILY
  27. LANTUS [Concomitant]
     Indication: DIABETES MELLITUS
     Dosage: 1 X AT BEDTIME
  28. PREDNISONE [Concomitant]
     Indication: PROPHYLAXIS AGAINST TRANSPLANT REJECTION
     Dosage: 10 MG DAILY
     Dates: start: 20071001
  29. LOSARTAN POTASSIUM [Concomitant]
     Dosage: 50 MG, 1 TABLET
     Route: 048
  30. MAGNEVIST [Suspect]
     Indication: NUCLEAR MAGNETIC RESONANCE IMAGING
     Dates: start: 20051104, end: 20051104
  31. LYRICA [Concomitant]
     Indication: FIBROMYALGIA
     Dosage: 5 MG X 2 DAILY
  32. CYMBALTA [Concomitant]
     Dosage: 20 MG DAILY
  33. REGULAR INSULIN [Concomitant]
     Indication: DIABETES MELLITUS
     Dosage: 3 X DAILY
  34. OPTIMARK [Suspect]
     Dosage: 20 CC
     Dates: start: 20040922, end: 20040922
  35. PROHANCE [Suspect]
     Indication: NUCLEAR MAGNETIC RESONANCE IMAGING
  36. PROGRAF [Concomitant]
     Indication: PROPHYLAXIS AGAINST TRANSPLANT REJECTION
     Dosage: 1 MG 3 CAPS AT 9 AM, 4 CAPS AT 9 PM
  37. EPOGEN [Concomitant]
     Dosage: UNK
     Dates: start: 20020601, end: 20071001
  38. ENALAPRIL MALEATE [Concomitant]
     Dosage: 20 MG, 1 TABLET TWICE DAILY
     Route: 048
  39. ATENOLOL [Concomitant]
     Dosage: 50 MG, 1 TABLET
     Route: 048
  40. CALCIUM CARBONATE [Concomitant]
     Dosage: 4 TABLETS
     Route: 048

REACTIONS (15)
  - NEPHROGENIC SYSTEMIC FIBROSIS [None]
  - EMOTIONAL DISTRESS [None]
  - SKIN HYPERTROPHY [None]
  - GENERAL PHYSICAL HEALTH DETERIORATION [None]
  - SCAR [None]
  - MOTOR DYSFUNCTION [None]
  - MOBILITY DECREASED [None]
  - MUSCLE CONTRACTURE [None]
  - INJURY [None]
  - PAIN [None]
  - ANXIETY [None]
  - SKIN INDURATION [None]
  - DEPRESSION [None]
  - BLISTER [None]
  - GAIT DISTURBANCE [None]
